FAERS Safety Report 13726538 (Version 2)
Quarter: 2017Q3

REPORT INFORMATION
  Report Type: Spontaneous
  Country: CH (occurrence: CH)
  Receive Date: 20170707
  Receipt Date: 20170717
  Transmission Date: 20171127
  Serious: Yes (Hospitalization, Other)
  Sender: FDA-Public Use
  Company Number: CH-PFIZER INC-2017292037

PATIENT
  Age: 67 Year
  Sex: Male
  Weight: 75 kg

DRUGS (4)
  1. VIAGRA [Suspect]
     Active Substance: SILDENAFIL CITRATE
     Dosage: UNK
  2. PRADIF T [Concomitant]
     Active Substance: TAMSULOSIN HYDROCHLORIDE
     Dosage: 400 UG, 1X/DAY (0-0-1-0)
     Route: 048
  3. TRIUMEQ [Concomitant]
     Active Substance: ABACAVIR SULFATE\DOLUTEGRAVIR SODIUM\LAMIVUDINE
     Dosage: 1 DF, 1X/DAY (0-0-1-0)
  4. TRITTICO [Concomitant]
     Active Substance: TRAZODONE HYDROCHLORIDE
     Dosage: 50 MG, 2X/DAY

REACTIONS (9)
  - Nasal injury [Recovered/Resolved]
  - Presyncope [Recovered/Resolved]
  - Syncope [Recovered/Resolved]
  - Contraindicated product administered [Unknown]
  - Dizziness [Recovered/Resolved]
  - Atrial fibrillation [Recovered/Resolved]
  - Palpitations [Recovered/Resolved]
  - Feeling hot [Recovered/Resolved]
  - Drug interaction [Recovered/Resolved]

NARRATIVE: CASE EVENT DATE: 20170331
